FAERS Safety Report 5007192-4 (Version None)
Quarter: 2006Q1

REPORT INFORMATION
  Report Type: 
  Country: None (occurrence: None)
  Receive Date: 20060327
  Receipt Date: 20060112
  Transmission Date: 20060701
  Serious: Yes (Death)
  Sender: FDA-Public Use
  Company Number: 220315

PATIENT
  Age: 38 Year
  Sex: Male
  Weight: 93 kg

DRUGS (2)
  1. AVASTIN [Suspect]
     Indication: ANGIOSARCOMA
     Dosage: 932 MG, Q3W
     Route: 042
     Dates: start: 20051104
  2. CHEMOTHERAPY (ANTINEOPLASTIC AGENT NOS) [Concomitant]

REACTIONS (4)
  - HAEMORRHAGE [None]
  - HEADACHE [None]
  - MENTAL STATUS CHANGES [None]
  - RESPIRATORY FAILURE [None]
